FAERS Safety Report 6754346-2 (Version None)
Quarter: 2010Q2

REPORT INFORMATION
  Report Type: 
  Country: None (occurrence: None)
  Receive Date: 20100601
  Receipt Date: 20100520
  Transmission Date: 20101027
  Serious: Yes (Hospitalization)
  Sender: FDA-Public Use
  Company Number: 7005706

PATIENT
  Sex: Female

DRUGS (6)
  1. REBIF [Suspect]
     Dosage: 44
  2. LYRICA [Concomitant]
  3. CITALOPRAM HYDROBROMIDE [Concomitant]
  4. PRAMIPEXOLE DIHYDROCHLORIDE [Concomitant]
  5. IBUPROFEN [Concomitant]
  6. OMEP (OMEPRAZOLE) [Concomitant]

REACTIONS (3)
  - EPILEPSY [None]
  - HEPATIC ENZYME INCREASED [None]
  - THROMBOCYTOPENIA [None]
